FAERS Safety Report 19656862 (Version 1)
Quarter: 2021Q3

REPORT INFORMATION
  Report Type: Spontaneous
  Country: US (occurrence: US)
  Receive Date: 20210804
  Receipt Date: 20210804
  Transmission Date: 20211014
  Serious: Yes (Other)
  Sender: FDA-Public Use
  Company Number: None

PATIENT
  Sex: Female

DRUGS (3)
  1. LORAZEPAM. [Concomitant]
     Active Substance: LORAZEPAM
     Dates: start: 20210717
  2. CABOMETYX [Suspect]
     Active Substance: CABOZANTINIB S-MALATE
     Indication: ANAEMIA
     Route: 048
     Dates: start: 20210721
  3. OSPHENA [Concomitant]
     Active Substance: OSPEMIFENE
     Dates: start: 20200918

REACTIONS (3)
  - Swelling [None]
  - Decreased appetite [None]
  - Fatigue [None]
